FAERS Safety Report 8369024-6 (Version None)
Quarter: 2012Q2

REPORT INFORMATION
  Report Type: 
  Country: None (occurrence: None)
  Receive Date: 20120518
  Receipt Date: 20120514
  Transmission Date: 20120825
  Serious: No
  Sender: FDA-Public Use
  Company Number: US-PFIZER INC-2012085722

PATIENT
  Sex: Female

DRUGS (1)
  1. IBUPROFEN (ADVIL) [Suspect]
     Indication: PAIN IN EXTREMITY
     Dosage: UNK, AS NEEDED
     Route: 048
     Dates: start: 20120401, end: 20120401

REACTIONS (1)
  - HYPERTENSION [None]
